FAERS Safety Report 21582959 (Version 1)
Quarter: 2022Q4

REPORT INFORMATION
  Report Type: Spontaneous
  Country: US (occurrence: None)
  Receive Date: 20221110
  Receipt Date: 20221110
  Transmission Date: 20230113
  Serious: Yes (Hospitalization)
  Sender: FDA-Public Use
  Company Number: None

PATIENT
  Age: 73 Year
  Sex: Male
  Weight: 110.7 kg

DRUGS (4)
  1. DARATUMUMAB\HYALURONIDASE-FIHJ [Suspect]
     Active Substance: DARATUMUMAB\HYALURONIDASE-FIHJ
     Dates: end: 20221020
  2. DEXAMETHASONE [Suspect]
     Active Substance: DEXAMETHASONE
     Dates: end: 20221103
  3. LENALIDOMIDE [Suspect]
     Active Substance: LENALIDOMIDE
     Dates: end: 20221105
  4. VELCADE [Suspect]
     Active Substance: BORTEZOMIB
     Dates: end: 20221103

REACTIONS (7)
  - COVID-19 [None]
  - Pneumococcal sepsis [None]
  - Tachycardia [None]
  - Blood creatinine increased [None]
  - Procalcitonin increased [None]
  - Brain natriuretic peptide increased [None]
  - Haemoglobin decreased [None]

NARRATIVE: CASE EVENT DATE: 20221106
